FAERS Safety Report 13681991 (Version 3)
Quarter: 2017Q3

REPORT INFORMATION
  Report Type: Spontaneous
  Country: KR (occurrence: KR)
  Receive Date: 20170623
  Receipt Date: 20170807
  Transmission Date: 20171127
  Serious: Yes (Other)
  Sender: FDA-Public Use
  Company Number: KR-009507513-1703KOR006965

PATIENT
  Age: 32 Year
  Sex: Female
  Weight: 73 kg

DRUGS (60)
  1. EMEND (FOSAPREPITANT DIMEGLUMINE) [Suspect]
     Active Substance: FOSAPREPITANT DIMEGLUMINE
     Dosage: 150 MG, ONCE
     Route: 042
     Dates: start: 20161007, end: 20161007
  2. CISPLATIN. [Concomitant]
     Active Substance: CISPLATIN
     Dosage: STRENGHT: 50MG/100ML; 93.5 MG, ONCE, CYCLE 3
     Route: 042
     Dates: start: 20160908, end: 20160908
  3. AVASTIN [Concomitant]
     Active Substance: BEVACIZUMAB
     Dosage: 570 MG, ONCE; CYCLE 4
     Route: 042
     Dates: start: 20161007, end: 20161007
  4. ALOXI [Concomitant]
     Active Substance: PALONOSETRON HYDROCHLORIDE
     Dosage: 0.25 MG , ONCE
     Route: 042
     Dates: start: 20160816, end: 20160816
  5. ALOXI [Concomitant]
     Active Substance: PALONOSETRON HYDROCHLORIDE
     Dosage: 0.25 MG , ONCE
     Route: 042
     Dates: start: 20161028, end: 20161028
  6. ALOXI [Concomitant]
     Active Substance: PALONOSETRON HYDROCHLORIDE
     Dosage: 0.25 MG , ONCE
     Route: 042
     Dates: start: 20160908, end: 20160908
  7. ATIVAN [Concomitant]
     Active Substance: LORAZEPAM
     Indication: PROPHYLAXIS
     Dosage: 1 TABLET, ONCE
     Route: 048
     Dates: start: 20160728, end: 20160728
  8. CHLORPHENIRAMINE. [Concomitant]
     Active Substance: CHLORPHENIRAMINE
     Dosage: 4 MG, ONCE
     Route: 042
     Dates: start: 20160816, end: 20160816
  9. CISPLATIN. [Concomitant]
     Active Substance: CISPLATIN
     Dosage: STRENGHT: 50MG/100ML; 92.5 MG, ONCE CYCLE 2
     Route: 042
     Dates: start: 20160816, end: 20160816
  10. CHLORPHENIRAMINE. [Concomitant]
     Active Substance: CHLORPHENIRAMINE
     Indication: PROPHYLAXIS
     Dosage: 4 MG, ONCE
     Route: 042
     Dates: start: 20160726, end: 20160726
  11. EMEND (FOSAPREPITANT DIMEGLUMINE) [Suspect]
     Active Substance: FOSAPREPITANT DIMEGLUMINE
     Dosage: 150 MG, ONCE
     Route: 042
     Dates: start: 20160908, end: 20160908
  12. CISPLATIN. [Concomitant]
     Active Substance: CISPLATIN
     Dosage: STRENGHT: 50MG/100ML; 95.5 MG, ONCE, CYCLE 4
     Route: 042
     Dates: start: 20161007, end: 20161007
  13. TAXOL [Concomitant]
     Active Substance: PACLITAXEL
     Dosage: 249.75 MG, ONCE; CYCLE 2
     Route: 042
     Dates: start: 20160816, end: 20160816
  14. TAXOL [Concomitant]
     Active Substance: PACLITAXEL
     Dosage: 257.85 MG, ONCE; CYCLE 4
     Route: 042
     Dates: start: 20161007, end: 20161007
  15. ALOXI [Concomitant]
     Active Substance: PALONOSETRON HYDROCHLORIDE
     Indication: ANTIEMETIC SUPPORTIVE CARE
     Dosage: 0.25 MG , ONCE
     Route: 042
     Dates: start: 20160726, end: 20160726
  16. MACPERAN [Concomitant]
     Active Substance: METOCLOPRAMIDE HYDROCHLORIDE
     Indication: PROPHYLAXIS AGAINST GASTROINTESTINAL ULCER
     Dosage: 5 MG, TID
     Route: 048
     Dates: start: 20160728, end: 20160801
  17. GASTER [Concomitant]
     Active Substance: FAMOTIDINE
     Dosage: 20 MG, ONCE
     Route: 048
     Dates: start: 20160908, end: 20160908
  18. CISPLATIN. [Concomitant]
     Active Substance: CISPLATIN
     Dosage: STRENGHT: 50MG/100ML; 94.5 MG, ONCE CYCLE 5
     Route: 042
     Dates: start: 20161028, end: 20161028
  19. AVASTIN [Concomitant]
     Active Substance: BEVACIZUMAB
     Dosage: 1119 MG, ONCE; CYCLE 5
     Route: 042
     Dates: start: 20161028, end: 20161028
  20. DEXAMETHASONE. [Concomitant]
     Active Substance: DEXAMETHASONE
     Indication: PROPHYLAXIS OF NAUSEA AND VOMITING
     Dosage: 3.75 MG, BID
     Route: 048
     Dates: start: 20160726, end: 20160726
  21. MANNITOL. [Concomitant]
     Active Substance: MANNITOL
     Indication: PROPHYLAXIS
     Dosage: 100 ML, ONCE
     Route: 042
     Dates: start: 20160726, end: 20160726
  22. CHLORPHENIRAMINE. [Concomitant]
     Active Substance: CHLORPHENIRAMINE
     Dosage: 4 MG, ONCE
     Route: 042
     Dates: start: 20161007, end: 20161007
  23. CISPLATIN. [Concomitant]
     Active Substance: CISPLATIN
     Indication: CERVIX CARCINOMA
     Dosage: STRENGHT: 50MG/100ML; 93 MG, ONCE CICLY 1
     Route: 042
     Dates: start: 20160726, end: 20160726
  24. AVASTIN [Concomitant]
     Active Substance: BEVACIZUMAB
     Dosage: 1068 MG, ONCE; CYCLE 2
     Route: 042
     Dates: start: 20160816, end: 20160816
  25. AVASTIN [Concomitant]
     Active Substance: BEVACIZUMAB
     Dosage: 1105.5 MG, ONCE; CYCLE 3
     Route: 042
     Dates: start: 20160908, end: 20160908
  26. TAXOL [Concomitant]
     Active Substance: PACLITAXEL
     Dosage: 255.15 MG, ONCE; CYCLE 5
     Route: 042
     Dates: start: 20161028, end: 20161028
  27. DEXAMETHASONE SODIUM PHOSPHATE. [Concomitant]
     Active Substance: DEXAMETHASONE SODIUM PHOSPHATE
     Dosage: 5 MG, ONCE
     Route: 042
     Dates: start: 20161007, end: 20161007
  28. DEXAMETHASONE. [Concomitant]
     Active Substance: DEXAMETHASONE
     Dosage: 3.75 MG, BID
     Route: 048
     Dates: start: 20160908, end: 20160908
  29. MIDAZOLAM [Concomitant]
     Active Substance: MIDAZOLAM HYDROCHLORIDE
     Indication: ENDOSCOPY
     Dosage: STRENGHT 3MG/3ML; 3 MG, ONCE
     Route: 042
     Dates: start: 20160726, end: 20160726
  30. LASIX [Concomitant]
     Active Substance: FUROSEMIDE
     Dosage: 20 MG, ONCE
     Route: 042
     Dates: start: 20161007, end: 20161007
  31. MANNITOL. [Concomitant]
     Active Substance: MANNITOL
     Dosage: 100 ML, ONCE
     Route: 042
     Dates: start: 20160816, end: 20160816
  32. MANNITOL. [Concomitant]
     Active Substance: MANNITOL
     Dosage: 100 ML, ONCE
     Route: 042
     Dates: start: 20161007, end: 20161007
  33. MANNITOL. [Concomitant]
     Active Substance: MANNITOL
     Dosage: 100 ML, ONCE
     Route: 042
     Dates: start: 20161028, end: 20161028
  34. EMEND (FOSAPREPITANT DIMEGLUMINE) [Suspect]
     Active Substance: FOSAPREPITANT DIMEGLUMINE
     Indication: PROPHYLAXIS OF NAUSEA AND VOMITING
     Dosage: 150 MG, ONCE
     Route: 042
     Dates: start: 20160726, end: 20160726
  35. EMEND (FOSAPREPITANT DIMEGLUMINE) [Suspect]
     Active Substance: FOSAPREPITANT DIMEGLUMINE
     Dosage: 150 MG, ONCE
     Route: 042
     Dates: start: 20160816, end: 20160816
  36. AVASTIN [Concomitant]
     Active Substance: BEVACIZUMAB
     Indication: CERVIX CARCINOMA
     Dosage: 365 MG, QD; CYCLE 1
     Route: 042
     Dates: start: 20160725, end: 20160726
  37. DEXAMETHASONE SODIUM PHOSPHATE. [Concomitant]
     Active Substance: DEXAMETHASONE SODIUM PHOSPHATE
     Indication: PROPHYLAXIS OF NAUSEA AND VOMITING
     Dosage: 5 MG, ONCE
     Route: 042
     Dates: start: 20160726, end: 20160726
  38. DEXAMETHASONE SODIUM PHOSPHATE. [Concomitant]
     Active Substance: DEXAMETHASONE SODIUM PHOSPHATE
     Dosage: 5 MG, ONCE
     Route: 042
     Dates: start: 20160816, end: 20160816
  39. DEXAMETHASONE SODIUM PHOSPHATE. [Concomitant]
     Active Substance: DEXAMETHASONE SODIUM PHOSPHATE
     Dosage: 5 MG, ONCE
     Route: 042
     Dates: start: 20160908, end: 20160908
  40. DEXAMETHASONE SODIUM PHOSPHATE. [Concomitant]
     Active Substance: DEXAMETHASONE SODIUM PHOSPHATE
     Dosage: 5 MG, ONCE
     Route: 042
     Dates: start: 20161028, end: 20161028
  41. DEXAMETHASONE. [Concomitant]
     Active Substance: DEXAMETHASONE
     Dosage: 3.75 MG, BID
     Route: 048
     Dates: start: 20160816, end: 20160816
  42. DEXAMETHASONE. [Concomitant]
     Active Substance: DEXAMETHASONE
     Dosage: 3.75 MG, BID
     Route: 048
     Dates: start: 20161007, end: 20161007
  43. ALOXI [Concomitant]
     Active Substance: PALONOSETRON HYDROCHLORIDE
     Dosage: 0.25 MG , ONCE
     Route: 042
     Dates: start: 20161007, end: 20161007
  44. ANEPOL [Concomitant]
     Indication: ENDOSCOPY
     Dosage: 120 MG, ONCE
     Route: 042
     Dates: start: 20160726, end: 20160726
  45. GASTER [Concomitant]
     Active Substance: FAMOTIDINE
     Indication: PROPHYLAXIS AGAINST GASTROINTESTINAL ULCER
     Dosage: 20 MG, ONCE
     Route: 048
     Dates: start: 20160726, end: 20160726
  46. GASTER [Concomitant]
     Active Substance: FAMOTIDINE
     Dosage: 20 MG, ONCE
     Route: 048
     Dates: start: 20161007, end: 20161007
  47. CHLORPHENIRAMINE. [Concomitant]
     Active Substance: CHLORPHENIRAMINE
     Dosage: 4 MG, ONCE
     Route: 042
     Dates: start: 20161028, end: 20161028
  48. EMEND (FOSAPREPITANT DIMEGLUMINE) [Suspect]
     Active Substance: FOSAPREPITANT DIMEGLUMINE
     Dosage: 150 MG, ONCE
     Route: 042
     Dates: start: 20161028, end: 20161028
  49. TAXOL [Concomitant]
     Active Substance: PACLITAXEL
     Indication: CERVIX CARCINOMA
     Dosage: 251 MG, ONCE; CYCLE 1
     Route: 042
     Dates: start: 20160725, end: 20160725
  50. MECKOOL [Concomitant]
     Indication: PROPHYLAXIS
     Dosage: 10 MG, ONCE
     Route: 042
     Dates: start: 20160728, end: 20160728
  51. LASIX [Concomitant]
     Active Substance: FUROSEMIDE
     Indication: PROPHYLAXIS
     Dosage: 20 MG, ONCE
     Route: 042
     Dates: start: 20160726, end: 20160726
  52. LASIX [Concomitant]
     Active Substance: FUROSEMIDE
     Dosage: 20 MG, ONCE
     Route: 042
     Dates: start: 20160908, end: 20160908
  53. LASIX [Concomitant]
     Active Substance: FUROSEMIDE
     Dosage: 20 MG, ONCE
     Route: 042
     Dates: start: 20161028, end: 20161028
  54. MANNITOL. [Concomitant]
     Active Substance: MANNITOL
     Dosage: 100 ML, ONCE
     Route: 042
     Dates: start: 20160908, end: 20160908
  55. GASTER [Concomitant]
     Active Substance: FAMOTIDINE
     Dosage: 20 MG, ONCE
     Route: 048
     Dates: start: 20160816, end: 20160816
  56. TAXOL [Concomitant]
     Active Substance: PACLITAXEL
     Dosage: 252.45 MG, ONCE; CYCLE 3
     Route: 042
     Dates: start: 20160908, end: 20160908
  57. DEXAMETHASONE. [Concomitant]
     Active Substance: DEXAMETHASONE
     Dosage: 3.75 MG, BID
     Route: 048
     Dates: start: 20161028, end: 20161028
  58. LASIX [Concomitant]
     Active Substance: FUROSEMIDE
     Dosage: 20 MG, ONCE
     Route: 042
     Dates: start: 20160816, end: 20160816
  59. GASTER [Concomitant]
     Active Substance: FAMOTIDINE
     Dosage: 20 MG, ONCE
     Route: 048
     Dates: start: 20161028, end: 20161028
  60. CHLORPHENIRAMINE. [Concomitant]
     Active Substance: CHLORPHENIRAMINE
     Dosage: 4 MG, ONCE
     Route: 042
     Dates: start: 20160908, end: 20160908

REACTIONS (7)
  - Vomiting [Recovered/Resolved]
  - Dyspnoea [Recovered/Resolved]
  - Dysphonia [Recovered/Resolved]
  - Cough [Recovered/Resolved]
  - Haematochezia [Recovered/Resolved]
  - Thrombosis [Recovered/Resolved]
  - Asthenia [Recovered/Resolved]

NARRATIVE: CASE EVENT DATE: 20160729
